FAERS Safety Report 8436305-7 (Version None)
Quarter: 2012Q2

REPORT INFORMATION
  Report Type: 
  Country: None (occurrence: None)
  Receive Date: 20120614
  Receipt Date: 20120601
  Transmission Date: 20120825
  Serious: Yes (Hospitalization, Other)
  Sender: FDA-Public Use
  Company Number: US-ELI_LILLY_AND_COMPANY-US201204005159

PATIENT
  Sex: Female

DRUGS (9)
  1. CYMBALTA [Suspect]
     Indication: FIBROMYALGIA
     Dosage: 60 MG, QD
     Dates: start: 20120124, end: 20120314
  2. VICODIN [Concomitant]
     Dosage: 1 DF, PRN
  3. VIVELLE [Concomitant]
     Dosage: 0.05 MG, 2/W
     Route: 062
  4. OXYCONTIN [Concomitant]
  5. OMEPRAZOLE [Concomitant]
     Dosage: 20 MG, QD
  6. NUVIGIL [Concomitant]
     Dosage: 250 MG, QD
  7. OPANA [Concomitant]
     Dosage: 40 MG, TID
  8. DIAZEPAM [Concomitant]
     Dosage: 5 MG, PRN
  9. LYRICA [Concomitant]
     Dosage: 100 MG, TID

REACTIONS (13)
  - DIZZINESS [None]
  - ABDOMINAL DISTENSION [None]
  - DYSPEPSIA [None]
  - FATIGUE [None]
  - DRY MOUTH [None]
  - SKIN DISCOLOURATION [None]
  - NAUSEA [None]
  - VOMITING [None]
  - CONVULSION [None]
  - DRUG WITHDRAWAL SYNDROME [None]
  - FEELING ABNORMAL [None]
  - CONSTIPATION [None]
  - VISUAL IMPAIRMENT [None]
